FAERS Safety Report 23268389 (Version 1)
Quarter: 2023Q4

REPORT INFORMATION
  Report Type: Report from Study
  Country: US (occurrence: US)
  Receive Date: 20231206
  Receipt Date: 20231206
  Transmission Date: 20240109
  Serious: Yes (Death, Life-Threatening, Hospitalization, Other)
  Sender: FDA-Public Use
  Company Number: US-PFIZER INC-PV202300188883

PATIENT
  Age: 49 Year
  Sex: Female
  Weight: 74.4 kg

DRUGS (2)
  1. BINIMETINIB [Suspect]
     Active Substance: BINIMETINIB
     Dosage: 30 MG
     Dates: start: 20230922, end: 20231017
  2. ZEN-003694 [Suspect]
     Active Substance: ZEN-003694
     Indication: Neoplasm
     Dosage: 36 MG
     Dates: start: 20230922, end: 20231017

REACTIONS (9)
  - Thrombocytopenia [Unknown]
  - Neoplasm progression [Fatal]
  - Anaemia [Recovered/Resolved]
  - Ejection fraction decreased [Unknown]
  - Fall [Recovered/Resolved]
  - Pneumonia klebsiella [Unknown]
  - Subdural haematoma [Unknown]
  - Bacteraemia [Unknown]
  - Urinary tract infection [Unknown]

NARRATIVE: CASE EVENT DATE: 20231017
